FAERS Safety Report 25195608 (Version 1)
Quarter: 2025Q2

REPORT INFORMATION
  Report Type: Spontaneous
  Country: US (occurrence: US)
  Receive Date: 20250415
  Receipt Date: 20250415
  Transmission Date: 20250716
  Serious: No
  Sender: SANOFI AVENTIS
  Company Number: US-SA-2025SA103593

PATIENT
  Sex: Female

DRUGS (1)
  1. DUPIXENT [Suspect]
     Active Substance: DUPILUMAB
     Indication: Dermatitis atopic
     Dosage: 200 MGL1.14ML: INJECT 1 FEN UNDER THE SKIN (SUBCUTANEOUS INJECTION) EVERY 2 WEEKS N THE ABDOMEN, ONG
     Route: 058
     Dates: start: 20240416

REACTIONS (1)
  - Sleep disorder [Not Recovered/Not Resolved]
